FAERS Safety Report 5360651-7 (Version None)
Quarter: 2007Q2

REPORT INFORMATION
  Report Type: 
  Country: None (occurrence: None)
  Receive Date: 20070618
  Receipt Date: 20070611
  Transmission Date: 20071010
  Serious: Yes (Hospitalization)
  Sender: FDA-Public Use
  Company Number: US-ELI_LILLY_AND_COMPANY-US200706003343

PATIENT
  Age: 68 Year
  Sex: Male

DRUGS (2)
  1. GEMZAR [Suspect]
     Indication: BLADDER CANCER STAGE IV
     Dosage: UNK, OTHER
     Route: 042
  2. CARBOPLATIN [Concomitant]
     Indication: BLADDER CANCER STAGE IV

REACTIONS (7)
  - ATELECTASIS [None]
  - CRYPTOGENIC ORGANISING PNEUMONIA [None]
  - FEBRILE NEUTROPENIA [None]
  - HAEMOGLOBIN DECREASED [None]
  - HAEMOPTYSIS [None]
  - PLEURAL EFFUSION [None]
  - SPUTUM DISCOLOURED [None]
